FAERS Safety Report 11390543 (Version 1)
Quarter: 2015Q3

REPORT INFORMATION
  Report Type: Spontaneous
  Country: US (occurrence: None)
  Receive Date: 20150814
  Receipt Date: 20150814
  Transmission Date: 20151125
  Serious: Yes (Hospitalization)
  Sender: FDA-Public Use
  Company Number: None

PATIENT
  Age: 2 Year
  Sex: Male
  Weight: 10.3 kg

DRUGS (2)
  1. VANCOMYCIN 5G APP PHARMACEUTICAL [Suspect]
     Active Substance: VANCOMYCIN
     Indication: OSTEOMYELITIS
     Dosage: 330 TID INTRAVENOUS
     Route: 042
     Dates: start: 20150801, end: 20150807
  2. PIPERACILLIN SODIUM/TAZOBACTAM [Suspect]
     Active Substance: PIPERACILLIN SODIUM\TAZOBACTAM SODIUM
     Indication: OSTEOMYELITIS
     Route: 042
     Dates: start: 20150801, end: 20150807

REACTIONS (3)
  - Pyrexia [None]
  - Vomiting [None]
  - Leukopenia [None]

NARRATIVE: CASE EVENT DATE: 20150807
